FAERS Safety Report 17977623 (Version 2)
Quarter: 2020Q3

REPORT INFORMATION
  Report Type: Spontaneous
  Country: FI (occurrence: FI)
  Receive Date: 20200703
  Receipt Date: 20200805
  Transmission Date: 20201103
  Serious: Yes (Disabling, Other)
  Sender: FDA-Public Use
  Company Number: NVSC2020FI165624

PATIENT
  Age: 40 Year
  Sex: Female

DRUGS (18)
  1. ZOPICLONE [Suspect]
     Active Substance: ZOPICLONE
     Indication: SLEEP DISORDER
     Dosage: 3.75 MG, BID
     Route: 065
     Dates: start: 2015, end: 2015
  2. QUETIAPINE. [Suspect]
     Active Substance: QUETIAPINE
     Indication: BIPOLAR DISORDER
     Dosage: LOW DOSE
     Route: 065
     Dates: start: 2008, end: 201503
  3. CITALOPRAM [Suspect]
     Active Substance: CITALOPRAM HYDROBROMIDE
     Dosage: 20 MG, 1D
     Route: 065
     Dates: start: 2015
  4. ALPRAZOLAM. [Suspect]
     Active Substance: ALPRAZOLAM
     Indication: INSOMNIA
     Dosage: 0.5 MG, 1D, TO BE TAKEN ONLY WHEN NEEDED, TOOK RARELY
     Route: 065
     Dates: start: 2015
  5. LITHIUM CARBONATE. [Suspect]
     Active Substance: LITHIUM CARBONATE
     Indication: ANTIDEPRESSANT THERAPY
     Dosage: 300 MG, 3?4 TIMES A DAY
     Route: 048
     Dates: start: 201308
  6. CITALOPRAM [Suspect]
     Active Substance: CITALOPRAM HYDROBROMIDE
     Indication: ANTIDEPRESSANT THERAPY
     Dosage: 20 MG, 1D
     Route: 065
     Dates: start: 2005
  7. LITHIUM CARBONATE. [Suspect]
     Active Substance: LITHIUM CARBONATE
     Indication: BIPOLAR DISORDER
     Dosage: 300 MG, 1?2 TIMES A DAY
     Route: 048
  8. QUETIAPINE. [Suspect]
     Active Substance: QUETIAPINE
     Dosage: LOW DOSE
     Route: 065
     Dates: start: 2008, end: 201503
  9. ALPRAZOLAM. [Suspect]
     Active Substance: ALPRAZOLAM
     Indication: SLEEP DISORDER
  10. ZOPICLONE [Suspect]
     Active Substance: ZOPICLONE
     Indication: INSOMNIA
     Dosage: 3.75 MG, 1D
     Route: 065
     Dates: start: 2015, end: 2015
  11. LITHIUM CARBONATE. [Suspect]
     Active Substance: LITHIUM CARBONATE
     Dosage: 150 MG, QD
     Route: 048
     Dates: start: 201502, end: 201502
  12. LITHIUM CARBONATE. [Suspect]
     Active Substance: LITHIUM CARBONATE
     Dosage: 300 MG, QD
     Route: 048
     Dates: start: 201502, end: 201502
  13. CITALOPRAM [Suspect]
     Active Substance: CITALOPRAM HYDROBROMIDE
     Dosage: 5 MG, 1D
     Route: 065
     Dates: start: 2015, end: 2015
  14. ZOPICLONE [Suspect]
     Active Substance: ZOPICLONE
     Dosage: 7.5 MG,1D, TO BE TAKEN ONLY WHEN NEEDED
     Route: 065
     Dates: start: 2015
  15. CITALOPRAM [Suspect]
     Active Substance: CITALOPRAM HYDROBROMIDE
     Dosage: 10 MG, 1D
     Route: 065
     Dates: start: 2015, end: 2015
  16. CITALOPRAM [Suspect]
     Active Substance: CITALOPRAM HYDROBROMIDE
     Dosage: 50 MG, 1D
     Route: 065
  17. LITHIUM CARBONATE. [Suspect]
     Active Substance: LITHIUM CARBONATE
     Dosage: 2 DF, QD
     Route: 065
     Dates: start: 201502, end: 201502
  18. LITHIUM CARBONATE. [Suspect]
     Active Substance: LITHIUM CARBONATE
     Dosage: 2.5 DF, QD
     Route: 065
     Dates: start: 201502

REACTIONS (9)
  - Speech disorder [Recovered/Resolved]
  - Weight increased [Recovered/Resolved]
  - Disturbance in attention [Recovered/Resolved]
  - Fatigue [Recovered/Resolved]
  - Hypothyroidism [Recovered/Resolved]
  - Cognitive disorder [Recovered/Resolved]
  - Sluggishness [Recovered/Resolved]
  - Memory impairment [Recovered/Resolved]
  - Ocular discomfort [Recovering/Resolving]

NARRATIVE: CASE EVENT DATE: 201308
